FAERS Safety Report 5199893-2 (Version None)
Quarter: 2007Q1

REPORT INFORMATION
  Report Type: 
  Country: None (occurrence: None)
  Receive Date: 20070105
  Receipt Date: 20061228
  Transmission Date: 20070707
  Serious: Yes (Hospitalization)
  Sender: FDA-Public Use
  Company Number: DE-ROCHE-476646

PATIENT
  Age: 54 Year
  Sex: Female
  Weight: 46 kg

DRUGS (3)
  1. CAPECITABINE [Suspect]
     Indication: BREAST CANCER
     Dosage: 2 TIMES PER DAY FROM DAY 1 TO DAY 14, EVERY 21 DAYS
     Route: 048
     Dates: start: 20061123, end: 20061213
  2. CAPECITABINE [Suspect]
     Dosage: 2 TIMES PER DAY, FROM DAY 1 TO DAY 14, EVERY 21 DAYS
     Route: 048
     Dates: start: 20061214
  3. DOCETAXEL [Suspect]
     Indication: BREAST CANCER
     Route: 042
     Dates: start: 20061123

REACTIONS (1)
  - FEBRILE NEUTROPENIA [None]
